FAERS Safety Report 23074536 (Version 3)
Quarter: 2025Q2

REPORT INFORMATION
  Report Type: Spontaneous
  Country: US (occurrence: US)
  Receive Date: 20231017
  Receipt Date: 20250418
  Transmission Date: 20250716
  Serious: Yes (Other)
  Sender: MYLAN
  Company Number: US-MYLANLABS-2023M1108837

PATIENT
  Sex: Female

DRUGS (2)
  1. GABAPENTIN [Suspect]
     Active Substance: GABAPENTIN
     Indication: Epilepsy
     Dosage: 800 MILLIGRAM, TID (3 X A DAY)
  2. GABAPENTIN [Suspect]
     Active Substance: GABAPENTIN
     Indication: Disability

REACTIONS (3)
  - Seizure [Unknown]
  - Vomiting [Unknown]
  - Off label use [Unknown]
